FAERS Safety Report 9911076 (Version 2)
Quarter: 2014Q1

REPORT INFORMATION
  Report Type: Spontaneous
  Country: US (occurrence: US)
  Receive Date: 20140219
  Receipt Date: 20140219
  Transmission Date: 20141002
  Serious: No
  Sender: FDA-Public Use
  Company Number: US-GILEAD-2012-0049037

PATIENT
  Sex: Female

DRUGS (6)
  1. LETAIRIS [Suspect]
     Indication: PULMONARY HYPERTENSION
     Dosage: 5 MG, UNK
     Route: 048
     Dates: start: 20111130
  2. LETAIRIS [Suspect]
     Indication: INTERSTITIAL LUNG DISEASE
  3. LETAIRIS [Suspect]
     Indication: RESPIRATORY FAILURE
  4. LETAIRIS [Suspect]
     Indication: CORONARY ARTERY DISEASE
  5. LETAIRIS [Suspect]
     Indication: COR PULMONALE
  6. LETAIRIS [Suspect]
     Indication: CARDIAC FAILURE CONGESTIVE

REACTIONS (5)
  - Epistaxis [Unknown]
  - Hot flush [Unknown]
  - Palpitations [Unknown]
  - Nasal congestion [Unknown]
  - Nasal discomfort [Unknown]
